FAERS Safety Report 4457616-6 (Version None)
Quarter: 2004Q3

REPORT INFORMATION
  Report Type: 
  Country: None (occurrence: None)
  Receive Date: 20040923
  Receipt Date: 20040916
  Transmission Date: 20050211
  Serious: Yes (Other)
  Sender: FDA-Public Use
  Company Number: 2004-09-0895

PATIENT
  Age: 60 Year
  Sex: Male

DRUGS (2)
  1. AERIUS (DESLORATADINE) 'LIKE CLARINEX' [Suspect]
     Indication: ECZEMA
  2. AERIUS (DESLORATADINE) 'LIKE CLARINEX' [Suspect]
     Indication: RHINITIS ALLERGIC

REACTIONS (1)
  - ELECTROCARDIOGRAM QT PROLONGED [None]
